FAERS Safety Report 21266048 (Version 1)
Quarter: 2022Q3

REPORT INFORMATION
  Report Type: Spontaneous
  Country: IT (occurrence: IT)
  Receive Date: 20220829
  Receipt Date: 20220829
  Transmission Date: 20221027
  Serious: Yes (Hospitalization)
  Sender: FDA-Public Use
  Company Number: None

PATIENT
  Age: 80 Year
  Sex: Male
  Weight: 88 kg

DRUGS (1)
  1. IMATINIB [Suspect]
     Active Substance: IMATINIB
     Indication: Gastrointestinal stromal tumour
     Dosage: UNIT DOSE: 400 MG , FREQUENCY TIME :24 HOURS, DURATION : 497 DAYS
     Dates: start: 20210304, end: 20220714

REACTIONS (2)
  - Lymphoedema [Recovered/Resolved]
  - Cardiac failure [Recovered/Resolved]

NARRATIVE: CASE EVENT DATE: 20220701
